FAERS Safety Report 7788725-1 (Version None)
Quarter: 2011Q3

REPORT INFORMATION
  Report Type: 
  Country: None (occurrence: None)
  Receive Date: 20110930
  Receipt Date: 20110923
  Transmission Date: 20111222
  Serious: Yes (Other)
  Sender: FDA-Public Use
  Company Number: US-SANOFI-AVENTIS-2011SA034070

PATIENT
  Age: 80 Year
  Sex: Female

DRUGS (1)
  1. MULTAQ [Suspect]
     Indication: ATRIAL FIBRILLATION
     Route: 048
     Dates: end: 20110531

REACTIONS (3)
  - PRODUCT QUALITY ISSUE [None]
  - ATRIAL FIBRILLATION [None]
  - MEDICATION ERROR [None]
